FAERS Safety Report 5884422-8 (Version None)
Quarter: 2008Q3

REPORT INFORMATION
  Report Type: 
  Country: None (occurrence: None)
  Receive Date: 20080915
  Receipt Date: 20080903
  Transmission Date: 20090109
  Serious: Yes (Death)
  Sender: FDA-Public Use
  Company Number: JP-PFIZER INC-2008074390

PATIENT
  Age: 75 Year
  Sex: Male

DRUGS (2)
  1. CAMPTOSAR [Suspect]
     Indication: GASTRIC CANCER
     Dosage: DAILY DOSE:80MG/M2
     Route: 042
     Dates: start: 20080814, end: 20080821
  2. TEGAFUR/GIMERACIL/OTERACIL POTASSIUM [Suspect]
     Indication: GASTRIC CANCER
     Route: 048
     Dates: start: 20080814, end: 20080825

REACTIONS (4)
  - ACUTE RESPIRATORY DISTRESS SYNDROME [None]
  - DISSEMINATED INTRAVASCULAR COAGULATION [None]
  - HEPATITIS FULMINANT [None]
  - THROMBOCYTOPENIA [None]
